FAERS Safety Report 7125180-9 (Version None)
Quarter: 2010Q4

REPORT INFORMATION
  Report Type: 
  Country: None (occurrence: None)
  Receive Date: 20101129
  Receipt Date: 20101116
  Transmission Date: 20110411
  Serious: Yes (Hospitalization)
  Sender: FDA-Public Use
  Company Number: NL-ASTRAZENECA-2010SE54677

PATIENT
  Age: 31623 Day
  Sex: Male
  Weight: 66 kg

DRUGS (15)
  1. LOSEC MUPS [Suspect]
     Indication: PROPHYLAXIS
     Route: 048
     Dates: start: 20060101, end: 20101104
  2. PARACETAMOL [Suspect]
     Indication: PAIN
     Route: 048
     Dates: start: 20101001, end: 20101104
  3. SIMVASTATIN [Suspect]
     Indication: CEREBROVASCULAR ACCIDENT
     Route: 048
     Dates: start: 20040101, end: 20101104
  4. COZAAR [Suspect]
     Indication: HYPERTENSION
     Route: 048
     Dates: start: 20060101
  5. LACTITOL [Concomitant]
     Route: 048
  6. ACETYLSALICYLIC ACID [Concomitant]
     Route: 048
  7. FERROSULFATE [Concomitant]
     Route: 048
  8. NITROGLYCERIN [Concomitant]
     Route: 048
  9. FUROSEMIDE [Concomitant]
     Route: 048
  10. SPIRONOLACTONE [Concomitant]
     Route: 048
  11. METOPROLOL [Concomitant]
     Route: 048
  12. TAMSULOSINE [Concomitant]
     Route: 048
  13. SALMETEROL/FLUTICASON [Concomitant]
     Dosage: 25/50 UG 1 DF BID
     Route: 055
  14. FLUTICASON [Concomitant]
     Route: 055
  15. SPIRIVA [Concomitant]
     Route: 055

REACTIONS (2)
  - LIVER FUNCTION TEST ABNORMAL [None]
  - RHABDOMYOLYSIS [None]
